FAERS Safety Report 8811072 (Version 1)
Quarter: 2012Q4

REPORT INFORMATION
  Report Type: 
  Country: US (occurrence: US)
  Receive Date: 20120927
  Receipt Date: 20120927
  Transmission Date: 20130627
  Serious: Yes (Other)
  Sender: FDA-Public Use
  Company Number: US-NAPPMUNDI-USA-2012-0093452

PATIENT
  Age: 22 Year
  Sex: Female

DRUGS (2)
  1. DILAUDID INJECTION [Suspect]
     Indication: PRODUCT USED FOR UNKNOWN INDICATION
     Dosage: 5 mg, daily
     Route: 042
     Dates: start: 20120905, end: 20120905
  2. FENTANYL [Concomitant]
     Indication: PRODUCT USED FOR UNKNOWN INDICATION

REACTIONS (3)
  - Hypoaesthesia [Recovering/Resolving]
  - Pruritus [Recovering/Resolving]
  - Hypoaesthesia oral [None]
